FAERS Safety Report 8872369 (Version 1)
Quarter: 2012Q4

REPORT INFORMATION
  Report Type: 
  Country: US (occurrence: US)
  Receive Date: 20121030
  Receipt Date: 20121030
  Transmission Date: 20130627
  Serious: Yes (Hospitalization, Other)
  Sender: FDA-Public Use
  Company Number: US-ELI_LILLY_AND_COMPANY-US201210005820

PATIENT
  Age: 63 Year
  Sex: Male

DRUGS (19)
  1. CYMBALTA [Suspect]
     Indication: DEPRESSION
     Dosage: 30 mg, qd
     Dates: start: 201110, end: 20121011
  2. ZYPREXA [Suspect]
     Indication: DEPRESSION
     Dosage: 2.5 mg, bid, two nightly
     Route: 048
  3. STALEVO [Concomitant]
  4. MIRAPEX [Concomitant]
  5. BACLOFEN [Concomitant]
  6. NAPROXEN [Concomitant]
  7. CARBIDOPA [Concomitant]
  8. LEVODOPA [Concomitant]
  9. CLARITIN [Concomitant]
  10. EXELON [Concomitant]
  11. CATAPRES                                /UNK/ [Concomitant]
  12. COLACE [Concomitant]
  13. REMERON [Concomitant]
  14. RITALIN [Concomitant]
     Dosage: UNK
     Dates: end: 20121011
  15. GELNIQUE [Concomitant]
  16. OXYBUTYNIN [Concomitant]
  17. MIRALAX [Concomitant]
  18. SENOKOT [Concomitant]
  19. ATIVAN [Concomitant]

REACTIONS (17)
  - Abscess limb [Unknown]
  - Blood pressure increased [Unknown]
  - Hypokinesia [Unknown]
  - Gait disturbance [Unknown]
  - Agitation [Unknown]
  - Sleep disorder [Unknown]
  - Nightmare [Unknown]
  - Insomnia [Unknown]
  - Memory impairment [Not Recovered/Not Resolved]
  - Muscle spasms [Unknown]
  - Incontinence [Unknown]
  - Constipation [Unknown]
  - Thirst decreased [Unknown]
  - Parkinson^s disease [Unknown]
  - Asthenia [Unknown]
  - Abnormal behaviour [Unknown]
  - Off label use [Unknown]
